FAERS Safety Report 7885896-3 (Version None)
Quarter: 2011Q4

REPORT INFORMATION
  Report Type: 
  Country: None (occurrence: None)
  Receive Date: 20111102
  Receipt Date: 20110630
  Transmission Date: 20120403
  Serious: No
  Sender: FDA-Public Use
  Company Number: US-AMGEN-USASP2011033569

PATIENT
  Age: 36 Year
  Sex: Female
  Weight: 78.005 kg

DRUGS (5)
  1. FOLIC ACID [Concomitant]
     Dosage: 1 MG, UNK
  2. METHOTREXATE [Concomitant]
     Dosage: 2.5 MG, UNK
  3. ENBREL [Suspect]
     Indication: PSORIASIS
     Dosage: 50 MG, QWK
  4. NUVARING [Concomitant]
     Dosage: UNK
  5. NAPROXEN [Concomitant]
     Dosage: 250 MG, UNK

REACTIONS (2)
  - DYSGEUSIA [None]
  - PAROSMIA [None]
